FAERS Safety Report 24590123 (Version 1)
Quarter: 2024Q4

REPORT INFORMATION
  Report Type: Spontaneous
  Country: ES (occurrence: ES)
  Receive Date: 20241107
  Receipt Date: 20241107
  Transmission Date: 20250115
  Serious: Yes (Hospitalization, Other)
  Sender: APELLIS PHARMACEUTICALS
  Company Number: ES-BIOVITRUM-2024-ES-014196

PATIENT

DRUGS (2)
  1. PEGCETACOPLAN [Suspect]
     Active Substance: PEGCETACOPLAN
     Indication: Product used for unknown indication
     Route: 058
  2. PEGCETACOPLAN [Suspect]
     Active Substance: PEGCETACOPLAN
     Dosage: 3 CONSECUTIVE DAYS STARTING YESTERDAY, WEDNESDAY
     Route: 058
     Dates: start: 20241030

REACTIONS (4)
  - Haemolysis [Not Recovered/Not Resolved]
  - Intestinal obstruction [Unknown]
  - Sepsis [Unknown]
  - Off label use [Unknown]

NARRATIVE: CASE EVENT DATE: 20241001
